FAERS Safety Report 6054169-6 (Version None)
Quarter: 2009Q1

REPORT INFORMATION
  Report Type: 
  Country: None (occurrence: None)
  Receive Date: 20090127
  Receipt Date: 20090121
  Transmission Date: 20090719
  Serious: Yes (Life-Threatening, Hospitalization)
  Sender: FDA-Public Use
  Company Number: DE-ABBOTT-08P-062-0492819-00

PATIENT
  Sex: Female
  Weight: 69 kg

DRUGS (12)
  1. HUMIRA [Suspect]
     Indication: RHEUMATOID ARTHRITIS
     Dosage: EVERY OTHER WEEK
     Route: 058
     Dates: start: 20070101, end: 20081110
  2. HUMIRA [Suspect]
     Dates: start: 20081210
  3. METHOTREXATE [Concomitant]
     Indication: DRUG USE FOR UNKNOWN INDICATION
  4. ACOXIA [Concomitant]
     Indication: DRUG USE FOR UNKNOWN INDICATION
  5. TILIDIN [Concomitant]
     Indication: DRUG USE FOR UNKNOWN INDICATION
  6. MONOBAL [Concomitant]
     Indication: DRUG USE FOR UNKNOWN INDICATION
  7. ARELIX [Concomitant]
     Indication: DRUG USE FOR UNKNOWN INDICATION
  8. ACE [Concomitant]
     Indication: DRUG USE FOR UNKNOWN INDICATION
  9. ANDANTE [Concomitant]
     Indication: DRUG USE FOR UNKNOWN INDICATION
  10. OMEPRAZOLE [Concomitant]
     Indication: DRUG USE FOR UNKNOWN INDICATION
  11. MEDIPRED [Concomitant]
     Indication: RHEUMATOID ARTHRITIS
  12. ESTROGENIC SUBSTANCE [Concomitant]
     Indication: DRUG USE FOR UNKNOWN INDICATION

REACTIONS (1)
  - UTERINE PROLAPSE [None]
